FAERS Safety Report 7637660-8 (Version None)
Quarter: 2011Q3

REPORT INFORMATION
  Report Type: 
  Country: None (occurrence: None)
  Receive Date: 20110726
  Receipt Date: 20110715
  Transmission Date: 20111222
  Serious: Yes (Hospitalization)
  Sender: FDA-Public Use
  Company Number: CM-GILEAD-2011-0041977

PATIENT
  Age: 77 Year
  Sex: Male
  Weight: 57 kg

DRUGS (3)
  1. CEFTRIAXONE [Suspect]
     Indication: OPPORTUNISTIC INFECTION PROPHYLAXIS
     Dates: start: 20020101
  2. TRUVADA [Suspect]
     Indication: HIV INFECTION
     Dates: start: 20110626
  3. LOPINAVIR/RITONAVIR [Suspect]
     Indication: HIV INFECTION
     Dates: start: 20110626

REACTIONS (2)
  - HEPATIC NEOPLASM MALIGNANT [None]
  - CHOLECYSTITIS [None]
